FAERS Safety Report 9030752 (Version 2)
Quarter: 2013Q1

REPORT INFORMATION
  Report Type: Report from Study
  Country: US (occurrence: US)
  Receive Date: 20130123
  Receipt Date: 20130123
  Transmission Date: 20140127
  Serious: Yes (Other)
  Sender: FDA-Public Use
  Company Number: US-ROCHE-1178313

PATIENT
  Sex: Male

DRUGS (2)
  1. PEGASYS [Suspect]
     Indication: CHRONIC HEPATITIS C
     Route: 058
     Dates: start: 20121226
  2. COPEGUS [Suspect]
     Indication: CHRONIC HEPATITIS C
     Dosage: DAILY DIVIDED DOSES
     Route: 048
     Dates: start: 20121226

REACTIONS (19)
  - Hot flush [Unknown]
  - Chills [Unknown]
  - Vomiting [Unknown]
  - Cold sweat [Unknown]
  - Diarrhoea [Unknown]
  - Pyrexia [Unknown]
  - Nasopharyngitis [Unknown]
  - Asthenia [Unknown]
  - Pain [Unknown]
  - Abdominal pain upper [Unknown]
  - Arthritis [Unknown]
  - Nausea [Unknown]
  - Myalgia [Unknown]
  - Arthralgia [Unknown]
  - Weight decreased [Unknown]
  - Neoplasm [Unknown]
  - Pain [Unknown]
  - Headache [Unknown]
  - Nail discolouration [Unknown]
